FAERS Safety Report 14861157 (Version 1)
Quarter: 2018Q2

REPORT INFORMATION
  Report Type: Spontaneous
  Country: US (occurrence: US)
  Receive Date: 20180508
  Receipt Date: 20180508
  Transmission Date: 20180711
  Serious: No
  Sender: FDA-Public Use
  Company Number: US-BAYER-2018-080210

PATIENT
  Age: 77 Year
  Sex: Male
  Weight: 76.96 kg

DRUGS (1)
  1. DR. SCHOLLS CLEAR AWAY WART REMOVER PLANTAR [Suspect]
     Active Substance: SALICYLIC ACID
     Indication: THERAPEUTIC SKIN CARE TOPICAL
     Dosage: 2 DF, UNK
     Route: 061
     Dates: start: 20180424

REACTIONS (1)
  - Wrong technique in product usage process [Unknown]

NARRATIVE: CASE EVENT DATE: 20180424
